FAERS Safety Report 5120410-7 (Version None)
Quarter: 2006Q4

REPORT INFORMATION
  Report Type: 
  Country: None (occurrence: None)
  Receive Date: 20061004
  Receipt Date: 20060831
  Transmission Date: 20070319
  Serious: Yes (Hospitalization)
  Sender: FDA-Public Use
  Company Number: JP-JPN-A200603212

PATIENT
  Age: 50 Year
  Sex: Female

DRUGS (12)
  1. ZEFIX [Suspect]
     Indication: VIRAL HEPATITIS CARRIER
     Dosage: 100MG PER DAY
     Route: 048
     Dates: start: 20060705, end: 20060803
  2. NU-LOTAN [Suspect]
     Indication: HYPERTENSION
     Dosage: 50MG PER DAY
     Route: 048
     Dates: start: 20060627, end: 20060803
  3. ADRENOCORTICAL HORMONE PREPARATIONS [Concomitant]
     Indication: SYSTEMIC LUPUS ERYTHEMATOSUS
     Dosage: 30MG PER DAY
     Route: 065
  4. PREDONINE [Concomitant]
     Dosage: 10MG PER DAY
     Route: 048
     Dates: end: 20060809
  5. PREDONINE [Concomitant]
     Dosage: 30MG PER DAY
     Route: 048
     Dates: start: 20060810, end: 20060831
  6. PREDONINE [Concomitant]
     Dosage: 25MG PER DAY
     Route: 048
     Dates: start: 20060901
  7. RENIVACE [Concomitant]
     Indication: HYPERTENSION
     Dosage: 2.5MG PER DAY
     Route: 048
     Dates: start: 20060630, end: 20060808
  8. LIPITOR [Concomitant]
     Dosage: 10MG PER DAY
     Route: 048
     Dates: end: 20060810
  9. MUCOSTA [Concomitant]
     Dosage: 200MG PER DAY
     Route: 048
     Dates: end: 20060810
  10. JUVELA NICOTINATE [Concomitant]
     Dosage: 300MG PER DAY
     Route: 048
     Dates: end: 20060810
  11. ONEALFA [Concomitant]
     Dosage: .5MCG PER DAY
     Route: 048
     Dates: end: 20060810
  12. GASTER D [Concomitant]
     Dosage: 20MG PER DAY
     Route: 048

REACTIONS (9)
  - BACTERIAL INFECTION [None]
  - CHILLS [None]
  - EFFUSION [None]
  - GENERALISED ERYTHEMA [None]
  - MOUTH ULCERATION [None]
  - PAIN [None]
  - PRURITUS [None]
  - PYREXIA [None]
  - RASH [None]
